FAERS Safety Report 19552476 (Version 2)
Quarter: 2021Q3

REPORT INFORMATION
  Report Type: Spontaneous
  Country: US (occurrence: US)
  Receive Date: 20210715
  Receipt Date: 20210728
  Transmission Date: 20211014
  Serious: Yes (Hospitalization, Other)
  Sender: FDA-Public Use
  Company Number: US-AMGEN-USASP2021105758

PATIENT
  Age: 80 Year
  Sex: Male

DRUGS (2)
  1. LUMAKRAS [Suspect]
     Active Substance: SOTORASIB
     Indication: NON-SMALL CELL LUNG CANCER STAGE IV
     Dosage: 960 MILLIGRAM, QD
     Route: 048
     Dates: start: 20210625
  2. LUMAKRAS [Suspect]
     Active Substance: SOTORASIB
     Indication: K-RAS GENE MUTATION
     Dosage: 480 MILLIGRAM, QD
     Route: 048
     Dates: start: 20210714

REACTIONS (1)
  - Cardiac failure congestive [Unknown]
